FAERS Safety Report 6491942-4 (Version None)
Quarter: 2009Q4

REPORT INFORMATION
  Report Type: 
  Country: None (occurrence: None)
  Receive Date: 20091208
  Receipt Date: 20091125
  Transmission Date: 20100525
  Serious: Yes (Hospitalization, Other)
  Sender: FDA-Public Use
  Company Number: OMPQ-NO-0911S-0974

PATIENT
  Sex: Female

DRUGS (1)
  1. OMNIPAQUE 350 [Suspect]
     Indication: INTERVERTEBRAL DISC PROTRUSION
     Dosage: 10 ML, SINGLE DOSE, I.T.
     Route: 037
     Dates: start: 20091123, end: 20091123

REACTIONS (3)
  - BACK PAIN [None]
  - BRAIN OEDEMA [None]
  - CONDITION AGGRAVATED [None]
